FAERS Safety Report 4869590-9 (Version None)
Quarter: 2005Q4

REPORT INFORMATION
  Report Type: 
  Country: None (occurrence: None)
  Receive Date: 20051227
  Receipt Date: 20051212
  Transmission Date: 20060501
  Serious: No
  Sender: FDA-Public Use
  Company Number: 2005-135555-NL

PATIENT
  Age: 10 Month
  Sex: Male

DRUGS (6)
  1. CHORIONIC GONADOTROPHIN (BACTCH #S: 783702, 798937, 790477) [Suspect]
     Dosage: 1500 IU INTRAMUSCULAR
     Route: 030
     Dates: start: 20051104, end: 20051105
  2. CHORIONIC GONADOTROPHIN (BACTCH #S: 783702, 798937, 790477) [Suspect]
     Dosage: 1500 IU INTRAMUSCULAR
     Route: 030
     Dates: start: 20051107, end: 20051107
  3. CHORIONIC GONADOTROPHIN (BACTCH #S: 783702, 798937, 790477) [Suspect]
     Dosage: 1500 IU INTRAMUSCULAR
     Route: 030
     Dates: start: 20051110, end: 20051110
  4. CHORIONIC GONADOTROPHIN (BACTCH #S: 783702, 798937, 790477) [Suspect]
     Dosage: 1500 IU INTRAMUSCULAR
     Route: 030
     Dates: start: 20051114, end: 20051114
  5. CHORIONIC GONADOTROPHIN (BACTCH #S: 783702, 798937, 790477) [Suspect]
     Dosage: 1500 IU INTRAMUSCULAR
     Route: 030
     Dates: start: 20051117, end: 20051117
  6. CHLORPHENIRAMINE MALEATE [Concomitant]

REACTIONS (5)
  - BLISTER [None]
  - ERYTHEMA [None]
  - HYPERSENSITIVITY [None]
  - INFLAMMATION [None]
  - OCULAR HYPERAEMIA [None]
